FAERS Safety Report 19044574 (Version 1)
Quarter: 2021Q1

REPORT INFORMATION
  Report Type: Spontaneous
  Country: FR (occurrence: FR)
  Receive Date: 20210322
  Receipt Date: 20210322
  Transmission Date: 20210420
  Serious: Yes (Other)
  Sender: FDA-Public Use
  Company Number: FR-GLAXOSMITHKLINE-FR2021062454

PATIENT
  Age: 27 Year
  Sex: Male
  Weight: 53 kg

DRUGS (5)
  1. VALGANCICLOVIR. [Concomitant]
     Active Substance: VALGANCICLOVIR
     Indication: PRODUCT USED FOR UNKNOWN INDICATION
     Dosage: UNK
     Route: 065
  2. KEPPRA [Suspect]
     Active Substance: LEVETIRACETAM
     Indication: SEIZURE
     Dosage: 1000 MG, QD
     Route: 048
     Dates: start: 20210202
  3. CLINDAMYCIN PHOSPHATE. [Suspect]
     Active Substance: CLINDAMYCIN PHOSPHATE
     Indication: CEREBRAL TOXOPLASMOSIS
     Dosage: 2400 MG, QD
     Route: 048
     Dates: start: 20210216
  4. PYRIMETHAMINE [Concomitant]
     Active Substance: PYRIMETHAMINE
     Indication: CEREBRAL TOXOPLASMOSIS
     Dosage: 50 MG, QD
     Route: 048
     Dates: start: 20210203
  5. WELLVONE [Suspect]
     Active Substance: ATOVAQUONE
     Indication: ANTIBIOTIC PROPHYLAXIS
     Dosage: 1500 MG, QD
     Route: 048
     Dates: start: 20210218, end: 20210224

REACTIONS (3)
  - Pyrexia [Not Recovered/Not Resolved]
  - Conjunctivitis [Not Recovered/Not Resolved]
  - Dermatitis exfoliative generalised [Not Recovered/Not Resolved]

NARRATIVE: CASE EVENT DATE: 20210224
